FAERS Safety Report 5744778-3 (Version None)
Quarter: 2008Q2

REPORT INFORMATION
  Report Type: 
  Country: None (occurrence: None)
  Receive Date: 20080520
  Receipt Date: 20080515
  Transmission Date: 20081010
  Serious: Yes (Hospitalization)
  Sender: FDA-Public Use
  Company Number: IT-MERCK-0805ITA00009

PATIENT
  Age: 32 Year
  Sex: Male

DRUGS (4)
  1. CANCIDAS [Suspect]
     Indication: FUNGAL INFECTION
     Route: 041
     Dates: start: 20080506, end: 20080508
  2. AMIKACIN [Concomitant]
     Route: 051
     Dates: start: 20080421
  3. MEROPENEM [Concomitant]
     Route: 051
     Dates: start: 20080421
  4. VANCOMYCIN [Concomitant]
     Route: 041
     Dates: start: 20080421

REACTIONS (4)
  - BLOOD ALKALINE PHOSPHATASE INCREASED [None]
  - BLOOD BILIRUBIN INCREASED [None]
  - GAMMA-GLUTAMYLTRANSFERASE INCREASED [None]
  - TRANSAMINASES INCREASED [None]
